FAERS Safety Report 7345038-X (Version None)
Quarter: 2011Q1

REPORT INFORMATION
  Report Type: 
  Country: None (occurrence: None)
  Receive Date: 20110310
  Receipt Date: 20110301
  Transmission Date: 20110831
  Serious: Yes (Other)
  Sender: FDA-Public Use
  Company Number: US-US-EMD SERONO, INC.-233489J09USA

PATIENT
  Sex: Female
  Weight: 78 kg

DRUGS (13)
  1. SIMVASTATIN [Concomitant]
     Route: 048
  2. ALPRAZOLAM [Concomitant]
     Route: 048
  3. BENEFIBER [Concomitant]
  4. TRAZODONE HCL [Concomitant]
     Route: 048
  5. VITAMIN D [Concomitant]
     Indication: VITAMIN D DEFICIENCY
     Route: 048
  6. CYMBALTA [Concomitant]
     Route: 048
  7. UNSPECIFIED MEDICATION [Concomitant]
     Indication: PREMEDICATION
  8. PAROXETINE [Concomitant]
     Route: 048
  9. FERROUS SULFATE TAB [Concomitant]
     Route: 048
  10. ABILIFY [Concomitant]
     Route: 048
  11. REBIF [Suspect]
     Indication: MULTIPLE SCLEROSIS
     Route: 058
     Dates: start: 20061110
  12. UNSPECIFIED MEDICATIONS FOR DEPRESSION [Concomitant]
     Indication: DEPRESSION
  13. OXCARBAZEPAM [Concomitant]
     Route: 048

REACTIONS (1)
  - PERNICIOUS ANAEMIA [None]
